FAERS Safety Report 6308531-4 (Version None)
Quarter: 2009Q3

REPORT INFORMATION
  Report Type: 
  Country: None (occurrence: None)
  Receive Date: 20090813
  Receipt Date: 20090807
  Transmission Date: 20100115
  Serious: Yes (Other)
  Sender: FDA-Public Use
  Company Number: ES-ABBOTT-09P-144-0590002-00

PATIENT
  Age: 33 Year
  Sex: Female

DRUGS (1)
  1. KALETRA [Suspect]
     Indication: HIV INFECTION
     Dosage: 400/100 MG BID
     Route: 048
     Dates: start: 20090601, end: 20090707

REACTIONS (1)
  - PSYCHIATRIC SYMPTOM [None]
